FAERS Safety Report 14655688 (Version 2)
Quarter: 2019Q3

REPORT INFORMATION
  Report Type: Report from Study
  Country: CA (occurrence: CA)
  Receive Date: 20180319
  Receipt Date: 20190812
  Transmission Date: 20191004
  Serious: Yes (Hospitalization, Disabling)
  Sender: FDA-Public Use
  Company Number: CA-BRISTOL-MYERS SQUIBB COMPANY-BMS-2017-114997

PATIENT
  Age: 45 Year
  Sex: Female

DRUGS (1)
  1. ABATACEPT [Suspect]
     Active Substance: ABATACEPT
     Indication: RHEUMATOID ARTHRITIS
     Dosage: 750 MG, Q4WK
     Route: 042
     Dates: start: 20111213

REACTIONS (9)
  - Ankle fracture [Recovering/Resolving]
  - Ovarian cyst [Recovered/Resolved]
  - Nasopharyngitis [Recovered/Resolved]
  - Musculoskeletal pain [Unknown]
  - Coccydynia [Unknown]
  - Foot fracture [Recovering/Resolving]
  - Joint injury [Recovering/Resolving]
  - Fall [Unknown]
  - Back injury [Unknown]

NARRATIVE: CASE EVENT DATE: 20171118
